FAERS Safety Report 5730651-3 (Version None)
Quarter: 2008Q2

REPORT INFORMATION
  Report Type: 
  Country: None (occurrence: None)
  Receive Date: 20080502
  Receipt Date: 20080428
  Transmission Date: 20081010
  Serious: Yes (Other)
  Sender: FDA-Public Use
  Company Number: THQ2008A00734

PATIENT
  Sex: Female

DRUGS (1)
  1. LUPRON DEPOT             (LEUPROLIE ACETATE) (INJECTION) [Suspect]
     Indication: ENDOMETRIOSIS
     Dosage: 3.75 MG (3.75 MG, 1 IN 1 D) INTRAMUSCULAR
     Route: 030
     Dates: end: 20071217

REACTIONS (6)
  - DRUG EXPOSURE DURING PREGNANCY [None]
  - IMPLANT SITE REACTION [None]
  - MATERNAL DRUGS AFFECTING FOETUS [None]
  - PREGNANCY [None]
  - VOMITING [None]
  - WOUND [None]
